FAERS Safety Report 21516206 (Version 1)
Quarter: 2022Q4

REPORT INFORMATION
  Report Type: Spontaneous
  Country: FR (occurrence: FR)
  Receive Date: 20221027
  Receipt Date: 20221027
  Transmission Date: 20230113
  Serious: Yes (Hospitalization)
  Sender: FDA-Public Use
  Company Number: None

PATIENT
  Age: 39 Year
  Sex: Female
  Weight: 100 kg

DRUGS (1)
  1. PAZOPANIB [Suspect]
     Active Substance: PAZOPANIB
     Indication: Sarcoma
     Dosage: 800 MG
     Route: 048
     Dates: start: 20180702, end: 20220928

REACTIONS (1)
  - Vena cava thrombosis [Not Recovered/Not Resolved]

NARRATIVE: CASE EVENT DATE: 20220921
